FAERS Safety Report 9734632 (Version 1)
Quarter: 2013Q4

REPORT INFORMATION
  Report Type: Spontaneous
  Country: US (occurrence: US)
  Receive Date: 20131206
  Receipt Date: 20131206
  Transmission Date: 20140711
  Serious: No
  Sender: FDA-Public Use
  Company Number: US-009507513-1312USA002823

PATIENT
  Age: 52 Year
  Sex: Male

DRUGS (1)
  1. PROVENTIL [Suspect]
     Dosage: 1-2 PUFFS EVERY 4-6 HOURS AS NEEDED
     Route: 055
     Dates: start: 2011

REACTIONS (1)
  - Tachycardia [Recovered/Resolved]
